FAERS Safety Report 21555054 (Version 1)
Quarter: 2022Q4

REPORT INFORMATION
  Report Type: Spontaneous
  Country: US (occurrence: None)
  Receive Date: 20221103
  Receipt Date: 20221103
  Transmission Date: 20230113
  Serious: Yes (Other)
  Sender: FDA-Public Use
  Company Number: None

PATIENT
  Sex: 0

DRUGS (1)
  1. SCEMBLIX [Suspect]
     Active Substance: ASCIMINIB HYDROCHLORIDE

REACTIONS (5)
  - Weight decreased [None]
  - Decreased appetite [None]
  - Illness [None]
  - Fatigue [None]
  - Loss of personal independence in daily activities [None]
